FAERS Safety Report 19422093 (Version 1)
Quarter: 2021Q2

REPORT INFORMATION
  Report Type: Spontaneous
  Country: US (occurrence: US)
  Receive Date: 20210615
  Receipt Date: 20210615
  Transmission Date: 20210717
  Serious: Yes (Death)
  Sender: FDA-Public Use
  Company Number: None

PATIENT
  Age: 70 Year
  Sex: Male

DRUGS (7)
  1. REVLIMID [Suspect]
     Active Substance: LENALIDOMIDE
     Indication: PLASMA CELL MYELOMA
     Route: 048
     Dates: start: 20200526, end: 20210603
  2. ROSUVASTATIN. [Concomitant]
     Active Substance: ROSUVASTATIN
  3. K?TAB [Concomitant]
     Active Substance: POTASSIUM CHLORIDE
  4. DULOXETINE. [Concomitant]
     Active Substance: DULOXETINE
  5. OXYCODONE [Concomitant]
     Active Substance: OXYCODONE
  6. METOPROLOL. [Concomitant]
     Active Substance: METOPROLOL
  7. ACYCLOVIR. [Concomitant]
     Active Substance: ACYCLOVIR

REACTIONS (11)
  - Decreased activity [None]
  - Heart rate irregular [None]
  - Sluggishness [None]
  - Lethargy [None]
  - Respiratory failure [None]
  - Hallucination [None]
  - Metabolic encephalopathy [None]
  - Agitation [None]
  - Hypophagia [None]
  - Mental status changes [None]
  - Delirium [None]

NARRATIVE: CASE EVENT DATE: 20210608
